FAERS Safety Report 7477988-8 (Version None)
Quarter: 2011Q2

REPORT INFORMATION
  Report Type: 
  Country: None (occurrence: None)
  Receive Date: 20110511
  Receipt Date: 20110511
  Transmission Date: 20111010
  Serious: Yes (Hospitalization)
  Sender: FDA-Public Use
  Company Number: None

PATIENT
  Age: 83 Year
  Sex: Male
  Weight: 63 kg

DRUGS (1)
  1. PRADAXA [Suspect]
     Dosage: 150MG TWICE DAILY PO
     Route: 048

REACTIONS (3)
  - ASTHENIA [None]
  - HAEMOGLOBIN DECREASED [None]
  - DUODENITIS [None]
